FAERS Safety Report 7505929-3 (Version None)
Quarter: 2011Q2

REPORT INFORMATION
  Report Type: 
  Country: None (occurrence: None)
  Receive Date: 20110526
  Receipt Date: 20110524
  Transmission Date: 20111010
  Serious: Yes (Other)
  Sender: FDA-Public Use
  Company Number: GB-ROCHE-654090

PATIENT
  Age: 30 Year
  Sex: Male
  Weight: 63.5 kg

DRUGS (4)
  1. IBUPROFEN [Concomitant]
  2. AMPICILLIN SODIUM/SULBACTAM SODIUM [Concomitant]
     Indication: TOOTHACHE
  3. NIGHT NURSE [Concomitant]
  4. TAMIFLU [Suspect]
     Route: 048
     Dates: start: 20090808, end: 20090813

REACTIONS (1)
  - HEPATITIS [None]
